FAERS Safety Report 9148291 (Version 1)
Quarter: 2013Q1

REPORT INFORMATION
  Report Type: Spontaneous
  Country: US (occurrence: None)
  Receive Date: 20130228
  Receipt Date: 20130228
  Transmission Date: 20140127
  Serious: Yes (Other)
  Sender: FDA-Public Use
  Company Number: None

PATIENT
  Age: 75 Year
  Sex: Female

DRUGS (2)
  1. XELODA [Suspect]
     Route: 048
     Dates: start: 20130213, end: 20130220
  2. XELODA [Suspect]
     Route: 048
     Dates: start: 20130213, end: 20130220

REACTIONS (1)
  - Oral herpes [None]
